FAERS Safety Report 10714495 (Version 2)
Quarter: 2019Q4

REPORT INFORMATION
  Report Type: Spontaneous
  Country: LB (occurrence: LB)
  Receive Date: 20150115
  Receipt Date: 20191119
  Transmission Date: 20200122
  Serious: Yes (Other)
  Sender: FDA-Public Use
  Company Number: LB-BAYER-2015-002057

PATIENT
  Age: 44 Year
  Sex: Male

DRUGS (6)
  1. CLADRIBINE. [Concomitant]
     Active Substance: CLADRIBINE
     Dosage: 1 CYCLE
  2. SORAFENIB (RAF KINASE INHIBITOR) [Suspect]
     Active Substance: SORAFENIB
     Indication: ACUTE MYELOID LEUKAEMIA
     Dosage: 400 MG, BID
  3. CYCLOSPORINE. [Concomitant]
     Active Substance: CYCLOSPORINE
     Indication: PROPHYLAXIS AGAINST GRAFT VERSUS HOST DISEASE
  4. G-CSF [Concomitant]
     Active Substance: GRANULOCYTE COLONY-STIMULATING FACTOR NOS
     Dosage: 1 CYCLE
  5. SORAFENIB (RAF KINASE INHIBITOR) [Suspect]
     Active Substance: SORAFENIB
     Indication: ACUTE MYELOID LEUKAEMIA
     Dosage: 200 MG, BID
  6. CYTARABINE. [Concomitant]
     Active Substance: CYTARABINE
     Dosage: 1 CYCLE

REACTIONS (5)
  - Graft versus host disease in skin [None]
  - Hepatotoxicity [None]
  - Off label use [None]
  - Product use in unapproved indication [None]
  - Hepatic enzyme increased [None]
